FAERS Safety Report 8549813-5 (Version None)
Quarter: 2012Q3

REPORT INFORMATION
  Report Type: 
  Country: None (occurrence: None)
  Receive Date: 20120730
  Receipt Date: 20120719
  Transmission Date: 20120928
  Serious: Yes (Other)
  Sender: FDA-Public Use
  Company Number: CN-ASTRAZENECA-2010SE07833

PATIENT
  Sex: Female
  Weight: 55.8 kg

DRUGS (2)
  1. NEXIUM [Suspect]
     Indication: GASTRIC ULCER
     Route: 048
     Dates: start: 20090215, end: 20090315
  2. NEXIUM [Suspect]
     Route: 048
     Dates: start: 20090315

REACTIONS (2)
  - GASTRIC MUCOSAL HYPERTROPHY [None]
  - GASTRIC POLYPS [None]
